FAERS Safety Report 6866785-X (Version None)
Quarter: 2010Q2

REPORT INFORMATION
  Report Type: 
  Country: None (occurrence: None)
  Receive Date: 20100610
  Receipt Date: 20100301
  Transmission Date: 20101027
  Serious: No
  Sender: FDA-Public Use
  Company Number: 2010SP012919

PATIENT
  Age: 14 Year
  Sex: Female

DRUGS (3)
  1. SAPHRIS [Suspect]
     Indication: DRUG USE FOR UNKNOWN INDICATION
     Dosage: ;SL
     Route: 060
     Dates: start: 20100301, end: 20100301
  2. ABILIFY [Concomitant]
  3. ALAVERT [Concomitant]

REACTIONS (1)
  - HYPOAESTHESIA ORAL [None]
